FAERS Safety Report 5101719-X (Version None)
Quarter: 2006Q3

REPORT INFORMATION
  Report Type: 
  Country: None (occurrence: None)
  Receive Date: 20060731
  Receipt Date: 20060602
  Transmission Date: 20061208
  Serious: No
  Sender: FDA-Public Use
  Company Number: 2006PV014915

PATIENT
  Age: 77 Year
  Sex: Male

DRUGS (4)
  1. BYETTA [Suspect]
     Indication: DIABETES MELLITUS NON-INSULIN-DEPENDENT
     Dosage: SEE IMAGE
     Route: 058
     Dates: start: 20060324, end: 20060423
  2. BYETTA [Suspect]
     Indication: DIABETES MELLITUS NON-INSULIN-DEPENDENT
     Dosage: SEE IMAGE
     Route: 058
     Dates: start: 20060424
  3. GLYBURIDE [Concomitant]
  4. ACTOS /USA/ [Concomitant]

REACTIONS (4)
  - AGEUSIA [None]
  - ASTHENIA [None]
  - DECREASED APPETITE [None]
  - WEIGHT DECREASED [None]
